FAERS Safety Report 4745446-7 (Version None)
Quarter: 2005Q3

REPORT INFORMATION
  Report Type: 
  Country: None (occurrence: None)
  Receive Date: 20050812
  Receipt Date: 20050729
  Transmission Date: 20060218
  Serious: Yes (Other)
  Sender: FDA-Public Use
  Company Number: 2005108162

PATIENT
  Sex: Female

DRUGS (1)
  1. UNISOM [Suspect]
     Dosage: UNSPECIFIED AMOUNT ONCE, ORAL
     Route: 048

REACTIONS (4)
  - CHEMICAL POISONING [None]
  - DYSARTHRIA [None]
  - OVERDOSE [None]
  - TREMOR [None]
